FAERS Safety Report 9826242 (Version 5)
Quarter: 2014Q2

REPORT INFORMATION
  Report Type: Report from Study
  Country: DE (occurrence: DE)
  Receive Date: 20140117
  Receipt Date: 20140429
  Transmission Date: 20141212
  Serious: Yes (Hospitalization)
  Sender: FDA-Public Use
  Company Number: DE-MERCK-1304DEU005458

PATIENT
  Age: 6 Year
  Sex: Female
  Weight: 17 kg

DRUGS (6)
  1. VORINOSTAT [Suspect]
     Indication: GLIOMA
     Dosage: 530 MG/M2, QD
     Route: 048
     Dates: start: 20121203, end: 20130331
  2. VORINOSTAT [Suspect]
     Dosage: 530 MG/M2, QD
     Route: 048
     Dates: start: 20130402, end: 20130403
  3. VORINOSTAT [Suspect]
     Dosage: 580 MG/M2, QD
     Route: 048
     Dates: start: 20130404, end: 20130409
  4. VORINOSTAT [Suspect]
     Dosage: 330 MG/M2, QD
     Route: 048
     Dates: end: 20140108
  5. VORINOSTAT [Suspect]
     Dosage: 330 MG/M2, QD
     Route: 048
     Dates: start: 20140119, end: 20140205
  6. VORINOSTAT [Suspect]
     Dosage: 280 MG/M2, QD
     Route: 048
     Dates: start: 20140213

REACTIONS (8)
  - Oropharyngeal pain [Recovered/Resolved]
  - Fatigue [Recovered/Resolved]
  - Weight decreased [Recovered/Resolved]
  - Dehydration [Recovered/Resolved]
  - Decreased appetite [Recovered/Resolved]
  - Upper respiratory tract infection [Recovered/Resolved]
  - Upper respiratory tract infection [Recovered/Resolved]
  - Infection [Recovered/Resolved]
